FAERS Safety Report 4521224-9 (Version None)
Quarter: 2004Q4

REPORT INFORMATION
  Report Type: 
  Country: None (occurrence: None)
  Receive Date: 20041208
  Receipt Date: 20041202
  Transmission Date: 20050328
  Serious: Yes (Hospitalization)
  Sender: FDA-Public Use
  Company Number: US-MERCK-0412USA00457

PATIENT
  Sex: Female
  Weight: 32 kg

DRUGS (1)
  1. CANCIDAS [Suspect]
     Indication: OESOPHAGEAL CANDIDIASIS
     Route: 042

REACTIONS (1)
  - THERAPEUTIC RESPONSE DECREASED [None]
